FAERS Safety Report 24207559 (Version 2)
Quarter: 2024Q3

REPORT INFORMATION
  Report Type: Spontaneous
  Country: IL (occurrence: IL)
  Receive Date: 20240814
  Receipt Date: 20240826
  Transmission Date: 20241017
  Serious: Yes (Life-Threatening, Other)
  Sender: NOVO NORDISK
  Company Number: IL-NOVOPROD-1263381

PATIENT
  Sex: Female
  Weight: 14 kg

DRUGS (4)
  1. NOVOSEVEN RT [Suspect]
     Active Substance: COAGULATION FACTOR VIIA RECOMBINANT HUMAN
     Indication: Prophylaxis
     Dosage: 1.3 MG, QD
  2. NOVOSEVEN RT [Suspect]
     Active Substance: COAGULATION FACTOR VIIA RECOMBINANT HUMAN
     Indication: Factor VII deficiency
     Dosage: UNK
  3. SULFAMETHOXAZOLE\TRIMETHOPRIM [Concomitant]
     Active Substance: SULFAMETHOXAZOLE\TRIMETHOPRIM
     Indication: Infection
     Dosage: UNK
  4. LEVETIRACETAM [Concomitant]
     Active Substance: LEVETIRACETAM
     Indication: Seizure
     Dosage: UNK

REACTIONS (3)
  - Haemorrhage intracranial [Unknown]
  - Anti factor VII antibody positive [Unknown]
  - Off label use [Unknown]
